FAERS Safety Report 14980917 (Version 3)
Quarter: 2018Q2

REPORT INFORMATION
  Report Type: Spontaneous
  Country: NL (occurrence: NL)
  Receive Date: 20180606
  Receipt Date: 20180606
  Transmission Date: 20180711
  Serious: Yes (Hospitalization)
  Sender: FDA-Public Use
  Company Number: PHHY2018NL031183

PATIENT
  Age: 29 Year
  Sex: Male
  Weight: 80 kg

DRUGS (5)
  1. OMEPRAZOLE. [Suspect]
     Active Substance: OMEPRAZOLE
     Indication: ARTHRITIS REACTIVE
     Dosage: 1 DF, QD (1DD1)
     Route: 065
     Dates: start: 20150701, end: 20160901
  2. PREDNISOLONE. [Suspect]
     Active Substance: PREDNISOLONE
     Indication: ARTHRITIS REACTIVE
     Dosage: 1 DF, QD (1DD1 -} 30-5)
     Route: 065
     Dates: start: 20150701, end: 20160901
  3. SULFASALAZINE. [Suspect]
     Active Substance: SULFASALAZINE
     Dosage: 1000 MG, Q8H (3DD2)
     Route: 065
     Dates: start: 20160509, end: 20160527
  4. SULFASALAZINE. [Suspect]
     Active Substance: SULFASALAZINE
     Dosage: 1000 MG, Q8H (3DD2)
     Route: 065
     Dates: start: 20160901
  5. SULFASALAZINE. [Suspect]
     Active Substance: SULFASALAZINE
     Indication: RHEUMATOID ARTHRITIS
     Dosage: 1000 MG, Q12H (2DD2)
     Route: 065
     Dates: start: 20150701, end: 20160508

REACTIONS (12)
  - Daydreaming [Recovered/Resolved]
  - Pyrexia [Recovered/Resolved]
  - Headache [Recovered/Resolved]
  - Vomiting [Recovered/Resolved]
  - Headache [Recovered/Resolved]
  - Restlessness [Recovered/Resolved]
  - Vomiting [Recovered/Resolved]
  - Tachycardia [Recovered/Resolved]
  - Malaise [Recovered/Resolved]
  - Restlessness [Recovered/Resolved]
  - Tachycardia [Recovered/Resolved]
  - Abdominal pain upper [Recovered/Resolved]

NARRATIVE: CASE EVENT DATE: 20160526
